FAERS Safety Report 25352910 (Version 2)
Quarter: 2025Q4

REPORT INFORMATION
  Report Type: Report from Study
  Country: US (occurrence: US)
  Receive Date: 20250523
  Receipt Date: 20251229
  Transmission Date: 20260117
  Serious: Yes (Other)
  Sender: OTSUKA
  Company Number: US-OTSUKA-2025_003465

PATIENT
  Sex: Male

DRUGS (2)
  1. TOLVAPTAN [Suspect]
     Active Substance: TOLVAPTAN
     Indication: Congenital cystic kidney disease
     Dosage: UNK
     Route: 065
  2. TOLVAPTAN [Suspect]
     Active Substance: TOLVAPTAN
     Dosage: UNK
     Route: 065

REACTIONS (12)
  - Ascites [Unknown]
  - Renal impairment [Recovered/Resolved]
  - Pharyngitis streptococcal [Unknown]
  - Oedema peripheral [Not Recovered/Not Resolved]
  - Abdominal discomfort [Unknown]
  - Oral candidiasis [Unknown]
  - Hypertension [Recovered/Resolved]
  - Weight increased [Not Recovered/Not Resolved]
  - Thirst [Unknown]
  - Polyuria [Unknown]
  - Treatment noncompliance [Unknown]
  - Product distribution issue [Recovered/Resolved]

NARRATIVE: CASE EVENT DATE: 20250210
